FAERS Safety Report 8195559-5 (Version None)
Quarter: 2012Q1

REPORT INFORMATION
  Report Type: 
  Country: None (occurrence: None)
  Receive Date: 20120308
  Receipt Date: 20120306
  Transmission Date: 20120608
  Serious: Yes (Death, Other)
  Sender: FDA-Public Use
  Company Number: PHHY2011CA68996

PATIENT
  Sex: Male

DRUGS (5)
  1. EXJADE [Suspect]
     Indication: MYELODYSPLASTIC SYNDROME
     Dosage: 2 DF, UNK
     Route: 048
  2. EXJADE [Suspect]
     Dosage: 3 DF, UNK
     Route: 048
  3. RAMIPRIL [Concomitant]
  4. PROCHLORPERAZINE [Concomitant]
     Indication: MALAISE
     Dosage: UNK UKN, UNK
  5. EXJADE [Suspect]
     Dosage: 6 DF, UNK
     Route: 048

REACTIONS (6)
  - HEADACHE [None]
  - BLOOD CREATININE INCREASED [None]
  - DEATH [None]
  - CARDIAC FAILURE CONGESTIVE [None]
  - SINUSITIS [None]
  - DYSPEPSIA [None]
